FAERS Safety Report 4570346-5 (Version None)
Quarter: 2005Q1

REPORT INFORMATION
  Report Type: 
  Country: None (occurrence: None)
  Receive Date: 20050204
  Receipt Date: 20050124
  Transmission Date: 20050727
  Serious: Yes (Hospitalization)
  Sender: FDA-Public Use
  Company Number: FR-ROCHE-393409

PATIENT
  Age: 32 Year
  Sex: Male

DRUGS (8)
  1. CLONAZEPAM [Suspect]
     Indication: DRUG USE FOR UNKNOWN INDICATION
     Route: 048
     Dates: start: 20041223
  2. LOXAPAC [Suspect]
     Indication: DRUG USE FOR UNKNOWN INDICATION
     Dosage: UNITS REPORTED AS ^FLASKS^
     Route: 030
     Dates: start: 20050112, end: 20050113
  3. MEPRONIZINE [Suspect]
     Indication: DRUG USE FOR UNKNOWN INDICATION
     Route: 048
     Dates: start: 20041223
  4. FRAXIPARINE [Suspect]
     Indication: DRUG USE FOR UNKNOWN INDICATION
     Route: 058
     Dates: start: 20050112
  5. HALDOL [Suspect]
     Indication: DRUG USE FOR UNKNOWN INDICATION
     Dosage: UNITS REPORTED AS ^FLASKS^
     Route: 030
     Dates: end: 20041229
  6. NOZINAN [Suspect]
     Indication: DRUG USE FOR UNKNOWN INDICATION
     Route: 048
  7. LYSANXIA [Concomitant]
  8. IMOVANE [Concomitant]
     Indication: INSOMNIA

REACTIONS (3)
  - AGITATION [None]
  - DELIRIUM [None]
  - PRIAPISM [None]
